FAERS Safety Report 7359424-5 (Version None)
Quarter: 2011Q1

REPORT INFORMATION
  Report Type: 
  Country: None (occurrence: None)
  Receive Date: 20110317
  Receipt Date: 20091228
  Transmission Date: 20110831
  Serious: No
  Sender: FDA-Public Use
  Company Number: US-PFIZER INC-2009315404

PATIENT
  Sex: Female
  Weight: 74 kg

DRUGS (5)
  1. BENICAR [Interacting]
     Dosage: 40 MG, 1X/DAY
     Route: 048
     Dates: start: 20090101
  2. MULTI-VITAMINS [Concomitant]
     Indication: MEDICAL DIET
     Dosage: UNK, 1X/DAY
     Route: 048
  3. NORVASC [Suspect]
     Indication: HYPERTENSION
     Dosage: 5 MG, 1X/DAY
     Route: 048
     Dates: start: 20091007
  4. BENICAR [Interacting]
     Indication: HYPERTENSION
     Dosage: 30 MG, 1X/DAY
     Route: 048
     Dates: start: 20090807, end: 20090101
  5. PREVACID [Interacting]
     Indication: ABDOMINAL DISCOMFORT
     Dosage: 30 MG, 1X/DAY
     Route: 048
     Dates: start: 20050101

REACTIONS (2)
  - DIZZINESS [None]
  - DRUG INTERACTION [None]
